FAERS Safety Report 15366926 (Version 1)
Quarter: 2018Q3

REPORT INFORMATION
  Report Type: Spontaneous
  Country: CA (occurrence: CA)
  Receive Date: 20180910
  Receipt Date: 20180910
  Transmission Date: 20181010
  Serious: Yes (Other)
  Sender: FDA-Public Use
  Company Number: CA-PFIZER INC-2018358146

PATIENT
  Age: 53 Year
  Sex: Male

DRUGS (6)
  1. METOPROLOL. [Concomitant]
     Active Substance: METOPROLOL
     Dosage: UNK
     Route: 048
  2. LANTUS [Concomitant]
     Active Substance: INSULIN GLARGINE
     Dosage: UNK
  3. AZATHIOPRINE. [Concomitant]
     Active Substance: AZATHIOPRINE
     Dosage: UNK
  4. LYRICA [Suspect]
     Active Substance: PREGABALIN
     Indication: NEURALGIA
     Dosage: UNK
  5. SULFASALAZINE. [Concomitant]
     Active Substance: SULFASALAZINE
     Dosage: UNK
  6. METFORMIN [Concomitant]
     Active Substance: METFORMIN HYDROCHLORIDE
     Dosage: UNK
     Route: 048

REACTIONS (11)
  - Fibromyalgia [Unknown]
  - Hypertension [Unknown]
  - Crohn^s disease [Unknown]
  - General physical condition abnormal [Unknown]
  - Diarrhoea [Unknown]
  - Peyronie^s disease [Unknown]
  - Fistula [Unknown]
  - Constipation [Unknown]
  - Abdominal pain [Unknown]
  - Type 2 diabetes mellitus [Unknown]
  - Abscess [Unknown]

NARRATIVE: CASE EVENT DATE: 2015
